FAERS Safety Report 9630931 (Version 1)
Quarter: 2013Q4

REPORT INFORMATION
  Report Type: Spontaneous
  Country: GB (occurrence: None)
  Receive Date: 20131011
  Receipt Date: 20131011
  Transmission Date: 20140711
  Serious: Yes (Other)
  Sender: FDA-Public Use
  Company Number: AUR-APL-2013-08371

PATIENT
  Age: 35 Year
  Sex: Male
  Weight: 106 kg

DRUGS (8)
  1. FLUOXETINE [Suspect]
     Indication: DEPRESSED MOOD
     Route: 048
     Dates: end: 20130326
  2. CLOZARIL (CLOZAPINE) [Suspect]
     Indication: PRODUCT USED FOR UNKNOWN INDICATION
     Route: 048
     Dates: start: 20130308, end: 20130322
  3. HYOSCINE [Concomitant]
  4. MAALOX [Concomitant]
  5. QUETIAPINE [Concomitant]
  6. SIMVASTATIN [Concomitant]
  7. SODIUM VALPROATE [Concomitant]
  8. ZOPICLONE [Concomitant]

REACTIONS (1)
  - Salivary hypersecretion [None]
